FAERS Safety Report 13449290 (Version 5)
Quarter: 2017Q2

REPORT INFORMATION
  Report Type: Report from Study
  Country: US (occurrence: US)
  Receive Date: 20170417
  Receipt Date: 20170525
  Transmission Date: 20170830
  Serious: Yes (Hospitalization, Other)
  Sender: FDA-Public Use
  Company Number: US-PFIZER INC-2017159513

PATIENT
  Age: 55 Year
  Sex: Female

DRUGS (6)
  1. IBRANCE [Suspect]
     Active Substance: PALBOCICLIB
     Dosage: 125 MG, CYCLIC [DAILY FOR DAY 1-DAY 21 FOLLOWED BY 7 DAYS OFF EVERY 28 DAYS]
     Route: 048
     Dates: start: 20170417
  2. IBRANCE [Suspect]
     Active Substance: PALBOCICLIB
     Dosage: UNK
     Route: 048
     Dates: start: 20170417, end: 201705
  3. IBRANCE [Suspect]
     Active Substance: PALBOCICLIB
     Indication: BREAST CANCER
     Dosage: 125 MG, CYCLIC (DAILY FOR DAY 1- DAY 21 FOLLOWED BY 7 DAYS OFF EVERY 28 DAYS)
     Route: 048
     Dates: start: 20170324, end: 20170331
  4. IBRANCE [Suspect]
     Active Substance: PALBOCICLIB
     Dosage: 125 MG, CYCLIC [DAILY X21DAYS / MONTH]
     Route: 048
     Dates: start: 201703, end: 20170410
  5. IBRANCE [Suspect]
     Active Substance: PALBOCICLIB
     Dosage: UNK
     Route: 048
  6. FASLODEX [Concomitant]
     Active Substance: FULVESTRANT
     Indication: BREAST CANCER METASTATIC
     Dosage: 500 MG, CYCLIC [Q 28 DAYS]
     Dates: start: 20170320

REACTIONS (10)
  - Spinal pain [Recovering/Resolving]
  - Neoplasm progression [Not Recovered/Not Resolved]
  - Pancytopenia [Recovered/Resolved]
  - Pelvic discomfort [Recovered/Resolved]
  - Back pain [Recovering/Resolving]
  - Intestinal obstruction [Unknown]
  - Abdominal distension [Not Recovered/Not Resolved]
  - Lung infiltration [Recovered/Resolved]
  - Leukopenia [Unknown]
  - Constipation [Not Recovered/Not Resolved]

NARRATIVE: CASE EVENT DATE: 2017
